FAERS Safety Report 9563446 (Version 1)
Quarter: 2013Q3

REPORT INFORMATION
  Report Type: Spontaneous
  Country: US (occurrence: None)
  Receive Date: 20130926
  Receipt Date: 20130926
  Transmission Date: 20140515
  Serious: Yes (Hospitalization)
  Sender: FDA-Public Use
  Company Number: None

PATIENT
  Age: 68 Year
  Sex: Male
  Weight: 107 kg

DRUGS (13)
  1. HEPARIN [Suspect]
     Indication: ANTICOAGULANT THERAPY
     Dosage: 1700UNITS/HR
     Route: 042
     Dates: start: 20110320, end: 20110326
  2. ASPIRIN [Concomitant]
  3. ATORVASTATIN [Concomitant]
  4. BISACODYL [Concomitant]
  5. CLOPIDOGREL [Concomitant]
  6. HYDROMORPHONE [Concomitant]
  7. INSULIN ASPART [Concomitant]
  8. INSULIN GLARGINE [Concomitant]
  9. METOPROLOL [Concomitant]
  10. OXYCODONE [Concomitant]
  11. PIPERACILLIN/TAZEOBACTAM [Concomitant]
  12. SENNA [Concomitant]
  13. VANCOMYCIN [Concomitant]

REACTIONS (1)
  - Retroperitoneal haemorrhage [None]
